FAERS Safety Report 17433122 (Version 1)
Quarter: 2020Q1

REPORT INFORMATION
  Report Type: Report from Study
  Country: US (occurrence: US)
  Receive Date: 20200219
  Receipt Date: 20200219
  Transmission Date: 20200409
  Serious: Yes (Death, Hospitalization)
  Sender: FDA-Public Use
  Company Number: US-ROCHE-2536180

PATIENT
  Age: 63 Year
  Sex: Female
  Weight: 51.52 kg

DRUGS (2)
  1. CABOZANTINIB [Suspect]
     Active Substance: CABOZANTINIB
     Indication: ENDOMETRIAL CANCER
     Dosage: MOST RECENT DOSE OF CABOZANTINIB PRIOR TO THE EVENT ONSET 12/NOV2019
     Route: 041
     Dates: start: 20191022
  2. ATEZOLIZUMAB. [Suspect]
     Active Substance: ATEZOLIZUMAB
     Indication: ENDOMETRIAL CANCER
     Dosage: MOST RECENT DOSE OF ATEZOLIZUMAB PRIOR TO THE EVENT ONSET: 22/OCT/2019
     Route: 042
     Dates: start: 20191022

REACTIONS (3)
  - Disease progression [Fatal]
  - Ascites [Not Recovered/Not Resolved]
  - Liver function test increased [Unknown]

NARRATIVE: CASE EVENT DATE: 20200110
